FAERS Safety Report 9136240 (Version 1)
Quarter: 2013Q1

REPORT INFORMATION
  Report Type: Spontaneous
  Country: US (occurrence: US)
  Receive Date: 20130304
  Receipt Date: 20130304
  Transmission Date: 20140127
  Serious: No
  Sender: FDA-Public Use
  Company Number: US-ABBOTT-12P-163-0980879-00

PATIENT
  Age: 66 Year
  Sex: Male
  Weight: 95.34 kg

DRUGS (2)
  1. ANDROGEL [Suspect]
     Indication: BLOOD TESTOSTERONE DECREASED
     Dosage: PACKET
     Route: 061
     Dates: start: 2012
  2. ANDROGEL [Suspect]
     Dosage: PACKET
     Route: 061
     Dates: start: 2006

REACTIONS (5)
  - Drug dispensing error [Recovered/Resolved]
  - Erectile dysfunction [Not Recovered/Not Resolved]
  - Incorrect dose administered [Not Recovered/Not Resolved]
  - Energy increased [Not Recovered/Not Resolved]
  - Therapeutic response unexpected [Not Recovered/Not Resolved]
